FAERS Safety Report 9995890 (Version 1)
Quarter: 2014Q1

REPORT INFORMATION
  Report Type: Spontaneous
  Country: US (occurrence: None)
  Receive Date: 20140310
  Receipt Date: 20140310
  Transmission Date: 20141002
  Serious: Yes (Hospitalization)
  Sender: FDA-Public Use
  Company Number: None

PATIENT
  Age: 51 Year
  Sex: Male

DRUGS (12)
  1. CIMZIA [Suspect]
     Dosage: 200 MG ONCE SQ
     Route: 058
     Dates: start: 20140303
  2. EFFEXOR [Concomitant]
  3. OXYCODONE [Concomitant]
  4. FENTANYL [Concomitant]
  5. GABAPENTIN [Concomitant]
  6. ZOFRAN [Concomitant]
  7. SYMBICORT [Concomitant]
  8. TUDORZA [Concomitant]
  9. NEXIUM [Concomitant]
  10. HYDROCORTISONE [Concomitant]
  11. CA+ [Concomitant]
  12. MG+ [Concomitant]

REACTIONS (1)
  - Pulmonary oedema [None]
